FAERS Safety Report 6231882-9 (Version None)
Quarter: 2009Q2

REPORT INFORMATION
  Report Type: 
  Country: None (occurrence: None)
  Receive Date: 20090616
  Receipt Date: 20090612
  Transmission Date: 20091009
  Serious: Yes (Hospitalization)
  Sender: FDA-Public Use
  Company Number: JP-BRISTOL-MYERS SQUIBB COMPANY-14640650

PATIENT
  Age: 47 Year
  Sex: Female

DRUGS (7)
  1. GATIFLOXACIN [Suspect]
     Indication: NASOPHARYNGITIS
     Route: 048
     Dates: start: 20090213, end: 20090219
  2. MEIACT [Suspect]
     Indication: NASOPHARYNGITIS
     Route: 048
     Dates: start: 20090213, end: 20090219
  3. TAMIFLU [Suspect]
     Indication: INFLUENZA
     Route: 048
     Dates: start: 20090213, end: 20090219
  4. CALONAL [Suspect]
     Indication: INFLUENZA
     Route: 048
     Dates: start: 20090213, end: 20090219
  5. CEFAMEZIN [Suspect]
     Indication: NASOPHARYNGITIS
     Route: 042
     Dates: start: 20090213, end: 20090219
  6. EXACIN [Suspect]
     Indication: NASOPHARYNGITIS
     Route: 042
     Dates: start: 20090213, end: 20090219
  7. OPTIRAY 350 [Concomitant]
     Route: 042
     Dates: start: 20090206, end: 20090206

REACTIONS (1)
  - TUBULOINTERSTITIAL NEPHRITIS [None]
